FAERS Safety Report 6007712-7 (Version None)
Quarter: 2008Q4

REPORT INFORMATION
  Report Type: 
  Country: None (occurrence: None)
  Receive Date: 20081217
  Receipt Date: 20080520
  Transmission Date: 20090506
  Serious: No
  Sender: FDA-Public Use
  Company Number: US-ASTRAZENECA-2008UW10316

PATIENT
  Age: 87 Year
  Sex: Female
  Weight: 68 kg

DRUGS (5)
  1. CRESTOR [Suspect]
     Indication: BLOOD CHOLESTEROL
     Route: 048
     Dates: start: 20080401
  2. CRESTOR [Suspect]
     Route: 048
  3. SYNTHROID [Concomitant]
  4. FOSAMAX [Concomitant]
  5. CLARITIN [Concomitant]

REACTIONS (3)
  - EXERCISE TOLERANCE DECREASED [None]
  - FEELING ABNORMAL [None]
  - HYPERSOMNIA [None]
